FAERS Safety Report 17942421 (Version 1)
Quarter: 2020Q2

REPORT INFORMATION
  Report Type: Other
  Country: CA (occurrence: CA)
  Receive Date: 20200625
  Receipt Date: 20200625
  Transmission Date: 20200714
  Serious: Yes (Other)
  Sender: FDA-Public Use
  Company Number: CA-ACCORD-186718

PATIENT
  Sex: Female

DRUGS (7)
  1. TOPIRAMATE MYLAN [Suspect]
     Active Substance: TOPIRAMATE
     Indication: EPILEPSY
  2. LAMOTRIGINE. [Suspect]
     Active Substance: LAMOTRIGINE
     Indication: EPILEPSY
  3. CLONAZEPAM. [Concomitant]
     Active Substance: CLONAZEPAM
     Indication: EPILEPSY
  4. LEVETIRACETAM. [Suspect]
     Active Substance: LEVETIRACETAM
     Indication: EPILEPSY
  5. ETHOSUXIMIDE. [Concomitant]
     Active Substance: ETHOSUXIMIDE
     Indication: EPILEPSY
  6. CLOBAZAM. [Suspect]
     Active Substance: CLOBAZAM
     Indication: EPILEPSY
  7. VALPROIC ACID. [Suspect]
     Active Substance: VALPROIC ACID
     Indication: EPILEPSY

REACTIONS (3)
  - Alopecia [Unknown]
  - Weight increased [Unknown]
  - Drug ineffective [Unknown]
